FAERS Safety Report 16598357 (Version 2)
Quarter: 2019Q3

REPORT INFORMATION
  Report Type: Report from Study
  Country: US (occurrence: US)
  Receive Date: 20190719
  Receipt Date: 20190808
  Transmission Date: 20191004
  Serious: Yes (Hospitalization, Other)
  Sender: FDA-Public Use
  Company Number: US-GILEAD-2019-0419112

PATIENT
  Sex: Female

DRUGS (13)
  1. NORCO [Concomitant]
     Active Substance: ACETAMINOPHEN\HYDROCODONE BITARTRATE
  2. ALLOPURINOL. [Concomitant]
     Active Substance: ALLOPURINOL
  3. ISOSORBIDE. [Concomitant]
     Active Substance: ISOSORBIDE
  4. METOPROLOL. [Concomitant]
     Active Substance: METOPROLOL
  5. RENVELA [Concomitant]
     Active Substance: SEVELAMER CARBONATE
  6. DILTIAZEM. [Concomitant]
     Active Substance: DILTIAZEM
  7. LOSARTAN. [Concomitant]
     Active Substance: LOSARTAN
  8. AMBRISENTAN [Suspect]
     Active Substance: AMBRISENTAN
     Indication: PRODUCT USED FOR UNKNOWN INDICATION
     Dosage: 5 MG
     Route: 065
  9. ELIQUIS [Concomitant]
     Active Substance: APIXABAN
  10. CARBAMAZEPINE. [Concomitant]
     Active Substance: CARBAMAZEPINE
  11. FENOFIBRATE. [Concomitant]
     Active Substance: FENOFIBRATE
  12. HYDRALAZINE [Concomitant]
     Active Substance: HYDRALAZINE HYDROCHLORIDE
  13. OMEPRAZOLE. [Concomitant]
     Active Substance: OMEPRAZOLE

REACTIONS (3)
  - Cardiac disorder [Unknown]
  - Seizure [Unknown]
  - Fatigue [Not Recovered/Not Resolved]
